FAERS Safety Report 18244243 (Version 4)
Quarter: 2022Q2

REPORT INFORMATION
  Report Type: Spontaneous
  Country: US (occurrence: US)
  Receive Date: 20200909
  Receipt Date: 20220531
  Transmission Date: 20220721
  Serious: Yes (Hospitalization, Other)
  Sender: FDA-Public Use
  Company Number: US-MLMSERVICE-20200828-2457845-1

PATIENT
  Age: 34 Year
  Sex: Female

DRUGS (12)
  1. LIDOCAINE [Suspect]
     Active Substance: LIDOCAINE
     Indication: Trigeminal neuralgia
     Dosage: 1 MILLIGRAM/KILOGRAM (LIDOCAINE DRIP)
     Route: 065
  2. LIDOCAINE [Suspect]
     Active Substance: LIDOCAINE
     Indication: Pain management
  3. METHYLPREDNISOLONE [Suspect]
     Active Substance: METHYLPREDNISOLONE
     Indication: Trigeminal neuralgia
     Dosage: 1 GRAM
     Route: 042
  4. PHENYTOIN [Suspect]
     Active Substance: PHENYTOIN
     Indication: Trigeminal neuralgia
     Dosage: 250 MILLIGRAM
     Route: 042
  5. KETAMINE [Suspect]
     Active Substance: KETAMINE
     Indication: Trigeminal neuralgia
     Dosage: 0.5 MILLIGRAM/KILOGRAM
     Route: 065
  6. KETAMINE [Suspect]
     Active Substance: KETAMINE
     Indication: Pain management
  7. LEVETIRACETAM [Concomitant]
     Active Substance: LEVETIRACETAM
     Indication: Trigeminal neuralgia
     Dosage: 750 MILLIGRAM, TWO TIMES A DAY
     Route: 048
  8. LEVETIRACETAM [Concomitant]
     Active Substance: LEVETIRACETAM
     Indication: Pain management
  9. CARBAMAZEPINE [Concomitant]
     Active Substance: CARBAMAZEPINE
     Indication: Trigeminal neuralgia
     Dosage: 200 MILLIGRAM, 3 TIMES A DAY
     Route: 048
  10. CARBAMAZEPINE [Concomitant]
     Active Substance: CARBAMAZEPINE
     Indication: Pain management
  11. HYDROMORPHONE [Concomitant]
     Active Substance: HYDROMORPHONE
     Indication: Product used for unknown indication
     Dosage: 0.1 MILLIGRAM/HOUR
     Route: 065
  12. KETOROLAC [Concomitant]
     Active Substance: KETOROLAC TROMETHAMINE
     Indication: Product used for unknown indication
     Dosage: 15 MILLIGRAM, 3 TIMES A DAY
     Route: 042

REACTIONS (2)
  - Hallucination [Unknown]
  - Drug ineffective [Unknown]
